FAERS Safety Report 8954912 (Version 1)
Quarter: 2012Q4

REPORT INFORMATION
  Report Type: 
  Country: FR (occurrence: FR)
  Receive Date: 20121207
  Receipt Date: 20121207
  Transmission Date: 20130627
  Serious: Yes (Other)
  Sender: FDA-Public Use
  Company Number: CHPA2012FR024923

PATIENT
  Age: 95 Year
  Sex: Female

DRUGS (1)
  1. SCOPODERM TTS [Suspect]
     Indication: SALIVARY HYPERSECRETION
     Dosage: 1 DF total
     Route: 062

REACTIONS (2)
  - Dyskinesia [Recovered/Resolved]
  - Off label use [Unknown]
